FAERS Safety Report 8922966 (Version 1)
Quarter: 2012Q4

REPORT INFORMATION
  Report Type: 
  Country: US (occurrence: US)
  Receive Date: 20121123
  Receipt Date: 20121123
  Transmission Date: 20130627
  Serious: No
  Sender: FDA-Public Use
  Company Number: US-PFIZER INC-2012292590

PATIENT
  Sex: Male

DRUGS (2)
  1. NORVASC [Suspect]
     Dosage: 2.5 mg, 1x/day
  2. CALCIUM\VITAMIN D [Interacting]
     Dosage: Calcium 600mg + Vitamin D 400 International Units twice a day

REACTIONS (1)
  - Drug interaction [Unknown]
